FAERS Safety Report 7218276-4 (Version None)
Quarter: 2011Q1

REPORT INFORMATION
  Report Type: 
  Country: None (occurrence: None)
  Receive Date: 20110110
  Receipt Date: 20101221
  Transmission Date: 20110831
  Serious: No
  Sender: FDA-Public Use
  Company Number: US-B.I. PHARMACEUTICALS,INC./RIDGEFIELD-2010-BP-15249BP

PATIENT
  Sex: Female

DRUGS (8)
  1. PRADAXA [Suspect]
     Indication: ATRIAL FIBRILLATION
     Dosage: 300 MG
     Route: 048
     Dates: start: 20101211, end: 20101216
  2. CARVEDILOL [Concomitant]
     Dosage: 12.5 MG
     Route: 048
  3. AMIODARONE [Concomitant]
     Indication: ATRIAL FIBRILLATION
     Dosage: 200 MG
     Route: 048
  4. LIPITOR [Concomitant]
     Indication: BLOOD CHOLESTEROL INCREASED
     Dosage: 20 MG
     Route: 048
  5. POTASSIUM [Concomitant]
     Indication: SUPPLEMENTATION THERAPY
     Dosage: 40 MCG
     Route: 048
  6. LASIX [Concomitant]
     Dosage: 40 MG
     Route: 048
  7. NITROGLYCERIN [Concomitant]
     Route: 062
  8. ASPIRIN [Concomitant]
     Dosage: 325 MG
     Route: 048

REACTIONS (2)
  - HEART RATE DECREASED [None]
  - HAEMATOCHEZIA [None]
